FAERS Safety Report 4536339-9 (Version None)
Quarter: 2004Q4

REPORT INFORMATION
  Report Type: 
  Country: None (occurrence: None)
  Receive Date: 20041223
  Receipt Date: 20040720
  Transmission Date: 20050328
  Serious: No
  Sender: FDA-Public Use
  Company Number: US-GLAXOSMITHKLINE-A0519041A

PATIENT
  Age: 48 Year
  Sex: Female

DRUGS (2)
  1. FLONASE [Suspect]
     Indication: SINUS POLYP
     Dosage: 2SPR PER DAY
     Route: 045
  2. NO CONCURRENT MEDICATION [Concomitant]

REACTIONS (1)
  - ARTHRALGIA [None]
